FAERS Safety Report 7701429-6 (Version None)
Quarter: 2011Q3

REPORT INFORMATION
  Report Type: 
  Country: None (occurrence: None)
  Receive Date: 20110822
  Receipt Date: 20110815
  Transmission Date: 20111222
  Serious: Yes (Disabling)
  Sender: FDA-Public Use
  Company Number: US-B.I. PHARMACEUTICALS,INC./RIDGEFIELD-2011-BP-18242BP

PATIENT
  Age: 91 Year
  Sex: Male
  Weight: 62.7 kg

DRUGS (6)
  1. PREDNISONE [Concomitant]
  2. POTASSIUM CHLORIDE [Concomitant]
     Dosage: 10 MEQ
  3. LISINOPRIL [Concomitant]
  4. LASIX [Concomitant]
     Dosage: 40 MG
  5. PRADAXA [Suspect]
     Indication: ATRIAL FIBRILLATION
     Dosage: 300 MG
     Route: 048
     Dates: start: 20110501, end: 20110719
  6. KETOCANAZOLE [Concomitant]

REACTIONS (3)
  - RETINAL HAEMORRHAGE [None]
  - VITREOUS HAEMORRHAGE [None]
  - EYE HAEMORRHAGE [None]
